FAERS Safety Report 4966074-4 (Version None)
Quarter: 2006Q2

REPORT INFORMATION
  Report Type: 
  Country: None (occurrence: None)
  Receive Date: 20060407
  Receipt Date: 20060403
  Transmission Date: 20061013
  Serious: Yes (Death)
  Sender: FDA-Public Use
  Company Number: PHEH2006US04396

PATIENT
  Age: 41 Year
  Sex: Male

DRUGS (6)
  1. EXJADE [Suspect]
     Indication: SICKLE CELL ANAEMIA
     Dosage: 1500 MG, QD
     Dates: start: 20060201
  2. PROCARDIA XL [Concomitant]
  3. SODIUM BICARBONATE [Concomitant]
  4. CALCIUM CARBONATE [Concomitant]
  5. CELLCEPT [Concomitant]
  6. FOLIC ACID [Concomitant]

REACTIONS (2)
  - SEPSIS [None]
  - SICKLE CELL ANAEMIA [None]
